FAERS Safety Report 5897502-8 (Version None)
Quarter: 2008Q3

REPORT INFORMATION
  Report Type: 
  Country: None (occurrence: None)
  Receive Date: 20080924
  Receipt Date: 20080924
  Transmission Date: 20090109
  Serious: No
  Sender: FDA-Public Use
  Company Number: None

PATIENT
  Age: 61 Year
  Sex: Male

DRUGS (4)
  1. AUGMENTIN '125' [Suspect]
     Dates: start: 20080108, end: 20080118
  2. ASCORBIC ACID [Concomitant]
  3. MILK THISTLE [Concomitant]
  4. VADIK HERBS (AYUREDIC HERB SUPPLEMENT) [Concomitant]

REACTIONS (3)
  - CHOLESTASIS [None]
  - HEPATOTOXICITY [None]
  - WEIGHT DECREASED [None]
